FAERS Safety Report 16176149 (Version 2)
Quarter: 2019Q2

REPORT INFORMATION
  Report Type: Spontaneous
  Country: US (occurrence: US)
  Receive Date: 20190409
  Receipt Date: 20190509
  Transmission Date: 20190711
  Serious: No
  Sender: FDA-Public Use
  Company Number: US-SA-2019SA093004

PATIENT
  Sex: Male

DRUGS (1)
  1. ENOXAPARIN SODIUM. [Suspect]
     Active Substance: ENOXAPARIN SODIUM
     Dosage: 90 MG, BID
     Route: 065

REACTIONS (6)
  - Injection site pain [Unknown]
  - Burning sensation [Unknown]
  - Urticaria [Unknown]
  - Device operational issue [Unknown]
  - Product packaging quantity issue [Unknown]
  - Injection site bruising [Unknown]
